FAERS Safety Report 12266513 (Version 2)
Quarter: 2021Q1

REPORT INFORMATION
  Report Type: Spontaneous
  Country: CA (occurrence: CA)
  Receive Date: 20160414
  Receipt Date: 20210208
  Transmission Date: 20210419
  Serious: Yes (Other)
  Sender: FDA-Public Use
  Company Number: CA-009507513-1604CAN007912

PATIENT
  Age: 24 Year
  Sex: Female

DRUGS (1)
  1. ELOCOM [Suspect]
     Active Substance: MOMETASONE FUROATE
     Indication: ALOPECIA
     Dosage: 1 EVERY 1 DAY (ONCE A DAY BEFORE BEDTIME) (75 ML IN A MONTH)
     Route: 061
     Dates: start: 201507

REACTIONS (3)
  - Therapeutic product effect decreased [Unknown]
  - Photophobia [Unknown]
  - Headache [Unknown]

NARRATIVE: CASE EVENT DATE: 20151106
